FAERS Safety Report 7257336-9 (Version None)
Quarter: 2011Q1

REPORT INFORMATION
  Report Type: 
  Country: None (occurrence: None)
  Receive Date: 20110129
  Receipt Date: 20100628
  Transmission Date: 20110831
  Serious: No
  Sender: FDA-Public Use
  Company Number: US-ABBOTT-10P-163-0654217-00

PATIENT
  Age: 74 Year
  Sex: Female

DRUGS (6)
  1. HUMIRA [Suspect]
     Indication: RHEUMATOID ARTHRITIS
     Dates: start: 20100608, end: 20100608
  2. DIOVAN [Concomitant]
     Indication: HYPERTENSION
  3. TOMOXIFEN [Concomitant]
     Indication: BREAST CANCER
  4. HUMIRA [Suspect]
     Dates: start: 20100608, end: 20100608
  5. MEDROL [Concomitant]
     Indication: RHEUMATOID ARTHRITIS
  6. HUMIRA [Suspect]
     Dates: start: 20100601, end: 20100601

REACTIONS (2)
  - FATIGUE [None]
  - PYREXIA [None]
